FAERS Safety Report 22093672 (Version 4)
Quarter: 2023Q1

REPORT INFORMATION
  Report Type: Spontaneous
  Country: US (occurrence: US)
  Receive Date: 20230314
  Receipt Date: 20230331
  Transmission Date: 20230418
  Serious: No
  Sender: FDA-Public Use
  Company Number: US-Dermavant-000273

PATIENT
  Age: 51 Year
  Sex: Male

DRUGS (1)
  1. TAPINAROF [Suspect]
     Active Substance: TAPINAROF
     Indication: Psoriasis
     Dosage: APPLIED TOPICALLY ONCE DAILY TO ELBOWS AND SHINS
     Route: 061
     Dates: start: 20221005, end: 20221121

REACTIONS (5)
  - Dermatitis contact [Unknown]
  - Psoriasis [Unknown]
  - Erythema [Unknown]
  - Skin burning sensation [Unknown]
  - Pruritus [Unknown]
